FAERS Safety Report 4401022-7 (Version None)
Quarter: 2004Q3

REPORT INFORMATION
  Report Type: 
  Country: None (occurrence: None)
  Receive Date: 20040907
  Receipt Date: 20030924
  Transmission Date: 20050211
  Serious: Yes (Other)
  Sender: FDA-Public Use
  Company Number: US-BRISTOL-MYERS SQUIBB COMPANY-12392940

PATIENT
  Age: 72 Year
  Sex: Male
  Weight: 73 kg

DRUGS (7)
  1. COUMADIN [Suspect]
     Indication: HEART RATE IRREGULAR
     Dosage: DOSE: 5MG 4 X/WK AND 1/2 TAB (OR 2.5 MG) THREE TIMES/WK.
     Route: 048
  2. ZYRTEC [Concomitant]
     Indication: MULTIPLE ALLERGIES
  3. LIPITOR [Concomitant]
     Dosage: FEW YEARS
  4. PLAVIX [Concomitant]
     Dates: start: 19980101
  5. LISINOPRIL [Concomitant]
     Dosage: FEW YEARS.
  6. PRINIVIL [Concomitant]
     Dosage: FEW YEARS.
  7. METOPROLOL [Concomitant]
     Dosage: FEW YEARS.

REACTIONS (2)
  - HAEMOPTYSIS [None]
  - MULTIPLE ALLERGIES [None]
